FAERS Safety Report 23724966 (Version 1)
Quarter: 2024Q2

REPORT INFORMATION
  Report Type: Report from Study
  Country: BR (occurrence: BR)
  Receive Date: 20240410
  Receipt Date: 20240410
  Transmission Date: 20240716
  Serious: Yes (Other)
  Sender: FDA-Public Use
  Company Number: BR-JNJFOC-20240409138

PATIENT
  Age: 50 Year
  Sex: Female
  Weight: 61 kg

DRUGS (1)
  1. INFLIXIMAB [Suspect]
     Active Substance: INFLIXIMAB
     Indication: Rheumatoid arthritis
     Route: 041
     Dates: start: 20210909, end: 202211

REACTIONS (7)
  - Myocardial infarction [Unknown]
  - Asphyxia [Unknown]
  - Malaise [Unknown]
  - Paraesthesia [Unknown]
  - Blood pressure increased [Recovered/Resolved]
  - Erythema [Unknown]
  - Feeling hot [Unknown]
